FAERS Safety Report 14045465 (Version 2)
Quarter: 2017Q4

REPORT INFORMATION
  Report Type: Report from Study
  Country: JP (occurrence: JP)
  Receive Date: 20171005
  Receipt Date: 20171112
  Transmission Date: 20180321
  Serious: Yes (Hospitalization)
  Sender: FDA-Public Use
  Company Number: JP-CONCORDIA PHARMACEUTICALS INC.-GSH201709-005537

PATIENT
  Age: 69 Year
  Sex: Male

DRUGS (8)
  1. SALAGEN [Concomitant]
     Active Substance: PILOCARPINE HYDROCHLORIDE
     Indication: PRODUCT USED FOR UNKNOWN INDICATION
  2. MAINTATE [Concomitant]
     Active Substance: BISOPROLOL FUMARATE
     Indication: PRODUCT USED FOR UNKNOWN INDICATION
  3. ANTEBATE [Concomitant]
     Active Substance: BETAMETHASONE DIPROPIONATE
     Indication: SYSTEMIC LUPUS ERYTHEMATOSUS
  4. BONOTEO [Concomitant]
     Active Substance: MINODRONIC ACID
     Indication: PROPHYLAXIS
  5. PLAQUENIL [Suspect]
     Active Substance: HYDROXYCHLOROQUINE SULFATE
     Dosage: 200 MG/DAY AND 400 MG/DAY ALTERNATELY
     Route: 048
     Dates: start: 20161007, end: 20161022
  6. PREDONINE [Concomitant]
     Active Substance: PREDNISOLONE
     Indication: SYSTEMIC LUPUS ERYTHEMATOSUS
     Dosage: INCREASED DOSE
     Dates: end: 20161110
  7. PLAQUENIL [Suspect]
     Active Substance: HYDROXYCHLOROQUINE SULFATE
     Indication: SYSTEMIC LUPUS ERYTHEMATOSUS
     Dosage: 200 MG/DAY AND 400 MG/DAY ALTERNATELY
     Route: 048
     Dates: start: 20161007, end: 20161022
  8. PARIET [Concomitant]
     Active Substance: RABEPRAZOLE SODIUM
     Indication: PROPHYLAXIS

REACTIONS (3)
  - Pruritus [Unknown]
  - Erythema multiforme [Recovered/Resolved]
  - Oedema [Unknown]

NARRATIVE: CASE EVENT DATE: 2016
